FAERS Safety Report 15950625 (Version 1)
Quarter: 2019Q1

REPORT INFORMATION
  Report Type: Spontaneous
  Country: BE (occurrence: BE)
  Receive Date: 20190211
  Receipt Date: 20190211
  Transmission Date: 20190417
  Serious: Yes (Hospitalization)
  Sender: FDA-Public Use
  Company Number: BE-MYLANLABS-2019M1011109

PATIENT
  Age: 80 Year
  Sex: Male

DRUGS (2)
  1. CLINDAMYCIN. [Suspect]
     Active Substance: CLINDAMYCIN
     Indication: PARONYCHIA
     Dosage: HE WAS TREATED WITH PILLS OF CLINDAMYCIN
     Route: 048
  2. COLCHICINE. [Concomitant]
     Active Substance: COLCHICINE
     Indication: GOUT
     Route: 065

REACTIONS (4)
  - Oesophageal ulcer [Recovering/Resolving]
  - Dysphagia [Recovered/Resolved]
  - Oesophagitis [Recovering/Resolving]
  - Oesophageal stenosis [Recovering/Resolving]
